FAERS Safety Report 5382432-0 (Version None)
Quarter: 2007Q2

REPORT INFORMATION
  Report Type: 
  Country: None (occurrence: None)
  Receive Date: 20070629
  Receipt Date: 20060731
  Transmission Date: 20071010
  Serious: Yes (Hospitalization)
  Sender: FDA-Public Use
  Company Number: VISP-PR-0607S-0492

PATIENT
  Age: 53 Year
  Sex: Female
  Weight: 61.23 kg

DRUGS (2)
  1. VISIPAQUE [Suspect]
     Indication: DYSPNOEA
     Dosage: 125 ML, SINGLE DOSE,  I.V.
     Route: 042
     Dates: start: 20060618, end: 20060618
  2. VISIPAQUE [Suspect]
     Indication: PULMONARY OEDEMA
     Dosage: 125 ML, SINGLE DOSE,  I.V.
     Route: 042
     Dates: start: 20060618, end: 20060618

REACTIONS (1)
  - ANAPHYLACTOID SHOCK [None]
